FAERS Safety Report 4610080-6 (Version None)
Quarter: 2005Q1

REPORT INFORMATION
  Report Type: 
  Country: None (occurrence: None)
  Receive Date: 20050315
  Receipt Date: 20050310
  Transmission Date: 20050727
  Serious: Yes (Death)
  Sender: FDA-Public Use
  Company Number: GXKR2005GB00738

PATIENT
  Age: 40 Year
  Sex: Male

DRUGS (1)
  1. METFORMIN (NGX) (METFORMIN) UNKNOWN [Suspect]
     Indication: DIABETES MELLITUS
     Dosage: 850 MG, BID

REACTIONS (10)
  - ANAEMIA MACROCYTIC [None]
  - BLOOD UREA DECREASED [None]
  - CARDIAC ARREST [None]
  - CIRRHOSIS ALCOHOLIC [None]
  - COAGULOPATHY [None]
  - GENERAL PHYSICAL HEALTH DETERIORATION [None]
  - HEPATITIS ALCOHOLIC [None]
  - HYPOGLYCAEMIA [None]
  - LACTIC ACIDOSIS [None]
  - MULTI-ORGAN FAILURE [None]
